FAERS Safety Report 15226419 (Version 1)
Quarter: 2018Q3

REPORT INFORMATION
  Report Type: Spontaneous
  Country: US (occurrence: US)
  Receive Date: 20180801
  Receipt Date: 20180801
  Transmission Date: 20181010
  Serious: No
  Sender: FDA-Public Use
  Company Number: US-ASTRAZENECA-2018SE86976

PATIENT
  Sex: Female
  Weight: 67.6 kg

DRUGS (7)
  1. SYMBICORT [Suspect]
     Active Substance: BUDESONIDE\FORMOTEROL FUMARATE DIHYDRATE
     Indication: EMPHYSEMA
     Dosage: 160/4.5 MCG, WHEN SHE FELT LIKE SHE NEEDED TO BREATHE AS REQUIRED
     Route: 055
     Dates: start: 201805
  2. EXPECTORANT(GENERIC) [Concomitant]
     Indication: PRODUCTIVE COUGH
     Dosage: AS REQUIRED
     Route: 048
  3. SPIRIVA [Concomitant]
     Active Substance: TIOTROPIUM BROMIDE MONOHYDRATE
     Indication: EMPHYSEMA
     Route: 055
  4. SYMBICORT [Suspect]
     Active Substance: BUDESONIDE\FORMOTEROL FUMARATE DIHYDRATE
     Indication: CHRONIC OBSTRUCTIVE PULMONARY DISEASE
     Dosage: 160/4.5 MCG, WHEN SHE FELT LIKE SHE NEEDED TO BREATHE AS REQUIRED
     Route: 055
     Dates: start: 201805
  5. SYMBICORT [Suspect]
     Active Substance: BUDESONIDE\FORMOTEROL FUMARATE DIHYDRATE
     Indication: CHRONIC OBSTRUCTIVE PULMONARY DISEASE
     Dosage: 160/4.5 MCG,TWO INHALATIONS, TWICE DAILY
     Route: 055
  6. LORATIDINE 24 HR RELEASE [Concomitant]
     Indication: MULTIPLE ALLERGIES
     Route: 048
  7. SYMBICORT [Suspect]
     Active Substance: BUDESONIDE\FORMOTEROL FUMARATE DIHYDRATE
     Indication: EMPHYSEMA
     Dosage: 160/4.5 MCG,TWO INHALATIONS, TWICE DAILY
     Route: 055

REACTIONS (5)
  - Back pain [Not Recovered/Not Resolved]
  - Swelling face [Not Recovered/Not Resolved]
  - Intentional product misuse [Recovered/Resolved]
  - Sinus disorder [Not Recovered/Not Resolved]
  - Rhinorrhoea [Not Recovered/Not Resolved]
